FAERS Safety Report 4277885-5 (Version None)
Quarter: 2004Q1

REPORT INFORMATION
  Report Type: 
  Country: None (occurrence: None)
  Receive Date: 20040121
  Receipt Date: 20040106
  Transmission Date: 20041129
  Serious: Yes (Life-Threatening, Hospitalization)
  Sender: FDA-Public Use
  Company Number: DE_040112702

PATIENT
  Sex: Male

DRUGS (1)
  1. XIGRIS [Suspect]
     Dates: start: 20040102, end: 20040101

REACTIONS (5)
  - DIALYSIS [None]
  - EPISTAXIS [None]
  - MULTI-ORGAN FAILURE [None]
  - PLATELET COUNT DECREASED [None]
  - PROTHROMBIN TIME [None]
